FAERS Safety Report 9200770 (Version 1)
Quarter: 2013Q1

REPORT INFORMATION
  Report Type: Spontaneous
  Country: PL (occurrence: None)
  Receive Date: 20130327
  Receipt Date: 20130327
  Transmission Date: 20140127
  Serious: Yes (Life-Threatening)
  Sender: FDA-Public Use
  Company Number: 2013-05343

PATIENT
  Age: 52 Year
  Sex: Female
  Weight: 87 kg

DRUGS (1)
  1. PACLITAXEL (PACLITAXEL) [Suspect]
     Indication: BREAST CANCER
     Dates: start: 20130218

REACTIONS (5)
  - Anaphylactic reaction [None]
  - Chest discomfort [None]
  - Dyspnoea [None]
  - Anxiety [None]
  - Erythema [None]
